FAERS Safety Report 6544736-5 (Version None)
Quarter: 2010Q1

REPORT INFORMATION
  Report Type: 
  Country: None (occurrence: None)
  Receive Date: 20100121
  Receipt Date: 20100112
  Transmission Date: 20100710
  Serious: Yes (Hospitalization, Other)
  Sender: FDA-Public Use
  Company Number: US-ASTRAZENECA-2010SE01319

PATIENT
  Age: 63 Year
  Sex: Female

DRUGS (12)
  1. QUETIAPINE FUMARATE [Suspect]
     Indication: BIPOLAR DISORDER
     Dosage: 12.5 MG TO 50 MG
     Route: 048
     Dates: start: 20040101
  2. PAXIL CR [Suspect]
     Indication: BIPOLAR DISORDER
     Dosage: 12.5 MG TO 37.5 MG
     Route: 048
     Dates: start: 19910101
  3. PAXIL CR [Suspect]
     Route: 048
     Dates: start: 19990101
  4. VALTREX [Suspect]
     Indication: HERPES ZOSTER
     Route: 048
     Dates: start: 20000101
  5. VALTREX [Suspect]
     Route: 048
  6. ZOVIRAX [Suspect]
     Indication: GENITAL HERPES
     Dates: start: 19740101
  7. ZOVIRAX [Suspect]
     Dates: start: 19780101
  8. LINSEED [Concomitant]
  9. CLONAZEPAM [Concomitant]
  10. LOSARTAN POTASSIUM [Concomitant]
  11. LIOTRIX [Concomitant]
  12. LITHIUM SALT [Concomitant]

REACTIONS (12)
  - BRONCHITIS [None]
  - CATARACT [None]
  - DRUG DEPENDENCE [None]
  - DRUG INEFFECTIVE [None]
  - EMOTIONAL DISORDER [None]
  - HYPOMANIA [None]
  - INSOMNIA [None]
  - MALAISE [None]
  - PNEUMONIA [None]
  - POST HERPETIC NEURALGIA [None]
  - PYREXIA [None]
  - RENAL DISORDER [None]
